FAERS Safety Report 13987457 (Version 2)
Quarter: 2018Q1

REPORT INFORMATION
  Report Type: Spontaneous
  Country: US (occurrence: US)
  Receive Date: 20170919
  Receipt Date: 20180117
  Transmission Date: 20180508
  Serious: Yes (Hospitalization, Other)
  Sender: FDA-Public Use
  Company Number: US-PFIZER INC-2017399590

PATIENT
  Age: 73 Year
  Sex: Female
  Weight: 90.72 kg

DRUGS (7)
  1. IBRANCE [Suspect]
     Active Substance: PALBOCICLIB
     Indication: BREAST CANCER
     Dosage: 125MG CAPSULE
     Dates: start: 201603
  2. ASPIRIN. [Concomitant]
     Active Substance: ASPIRIN
     Indication: CEREBROVASCULAR ACCIDENT
     Dosage: UNK
     Dates: start: 2010
  3. IBRANCE [Suspect]
     Active Substance: PALBOCICLIB
     Dosage: 100MG CAPSULE, ONCE A DAY FOR 21 DAYS AND OFF 7 DAYS
     Dates: start: 201702
  4. PROPRANOLOL [Concomitant]
     Active Substance: PROPRANOLOL HYDROCHLORIDE
     Indication: HYPERTENSION
     Dosage: 20 MG, 1X/DAY
     Route: 048
     Dates: start: 2010
  5. ASPIRIN. [Concomitant]
     Active Substance: ASPIRIN
     Dosage: 81 MG, UNK
     Dates: start: 201611
  6. LETROZOLE. [Suspect]
     Active Substance: LETROZOLE
     Indication: BREAST CANCER
     Dosage: 2.5MG TABLET, ONCE A DAY 21 DAYS AND ALONE FOR 7 DAYS WITH NO IBRANCE
     Route: 048
     Dates: start: 201603
  7. LETROZOLE. [Suspect]
     Active Substance: LETROZOLE
     Dosage: 2.5 MG, 1X/DAY
     Dates: start: 201702

REACTIONS (11)
  - Dyspnoea [Recovered/Resolved]
  - Stomatitis [Not Recovered/Not Resolved]
  - Pulmonary oedema [Recovered/Resolved]
  - Myocardial infarction [Recovered/Resolved]
  - Ageusia [Not Recovered/Not Resolved]
  - Condition aggravated [Not Recovered/Not Resolved]
  - Somnolence [Not Recovered/Not Resolved]
  - Stomatitis [Not Recovered/Not Resolved]
  - Decreased appetite [Not Recovered/Not Resolved]
  - Neoplasm progression [Not Recovered/Not Resolved]
  - Weight increased [Not Recovered/Not Resolved]

NARRATIVE: CASE EVENT DATE: 2016
